FAERS Safety Report 16601121 (Version 1)
Quarter: 2019Q3

REPORT INFORMATION
  Report Type: Spontaneous
  Country: JP (occurrence: JP)
  Receive Date: 20190719
  Receipt Date: 20190719
  Transmission Date: 20191004
  Serious: Yes (Other)
  Sender: FDA-Public Use
  Company Number: JP-PFIZER INC-2019301630

PATIENT
  Sex: Male

DRUGS (1)
  1. CELECOX [Suspect]
     Active Substance: CELECOXIB
     Dosage: UNK

REACTIONS (2)
  - Gastrointestinal disorder [Unknown]
  - Haematemesis [Recovered/Resolved]
